FAERS Safety Report 22250538 (Version 1)
Quarter: 2023Q2

REPORT INFORMATION
  Report Type: Spontaneous
  Country: US (occurrence: US)
  Receive Date: 20230425
  Receipt Date: 20230425
  Transmission Date: 20230721
  Serious: Yes (Hospitalization, Disabling, Other)
  Sender: FDA-Public Use
  Company Number: US-MERCK-1205USA00015

PATIENT
  Sex: Female
  Weight: 46.259 kg

DRUGS (7)
  1. FOSAMAX [Suspect]
     Active Substance: ALENDRONATE SODIUM
     Indication: Osteoporosis
     Dosage: ONE DOSE DAILY, QD
     Route: 048
     Dates: end: 19990727
  2. FOSAMAX [Suspect]
     Active Substance: ALENDRONATE SODIUM
     Indication: Osteoporosis prophylaxis
     Dosage: 70 MG, QW
     Route: 048
  3. FOSAMAX [Suspect]
     Active Substance: ALENDRONATE SODIUM
     Indication: Osteoporosis
     Dosage: UNK
     Route: 048
  4. FOSAMAX [Suspect]
     Active Substance: ALENDRONATE SODIUM
     Indication: Osteoporosis prophylaxis
  5. ALENDRONATE SODIUM [Suspect]
     Active Substance: ALENDRONATE SODIUM
     Indication: Osteoporosis
     Dosage: 70 MG, QW
     Route: 048
     Dates: end: 20111007
  6. CALCIUM [Concomitant]
     Active Substance: CALCIUM
     Indication: Osteoporosis
     Dosage: BID
  7. VITAMIN D NOS [Concomitant]
     Active Substance: VITAMIN D NOS
     Indication: Osteoporosis
     Dosage: BID

REACTIONS (24)
  - Femur fracture [Not Recovered/Not Resolved]
  - Intramedullary rod insertion [Unknown]
  - Low turnover osteopathy [Not Recovered/Not Resolved]
  - Colectomy [Unknown]
  - Cataract operation [Unknown]
  - Heart rate irregular [Unknown]
  - Anaemia postoperative [Recovered/Resolved]
  - Escherichia urinary tract infection [Unknown]
  - Labile blood pressure [Unknown]
  - Pneumonia [Unknown]
  - Supraventricular extrasystoles [Unknown]
  - Catheterisation cardiac [Unknown]
  - Large intestinal polypectomy [Unknown]
  - Large intestine polyp [Unknown]
  - Stress [Unknown]
  - Bursitis [Unknown]
  - Cerumen impaction [Unknown]
  - Large intestine benign neoplasm [Unknown]
  - Osteopenia [Unknown]
  - Carotid bruit [Unknown]
  - Hypertension [Unknown]
  - Impaired healing [Unknown]
  - Dizziness [Recovered/Resolved]
  - Oedema peripheral [Unknown]

NARRATIVE: CASE EVENT DATE: 20020325
